FAERS Safety Report 14661476 (Version 3)
Quarter: 2018Q1

REPORT INFORMATION
  Report Type: Spontaneous
  Country: JP (occurrence: JP)
  Receive Date: 20180320
  Receipt Date: 20180329
  Transmission Date: 20180509
  Serious: Yes (Death)
  Sender: FDA-Public Use
  Company Number: JP-ABBVIE-18S-087-2291884-00

PATIENT
  Age: 51 Year
  Sex: Male

DRUGS (3)
  1. NORVIR [Suspect]
     Active Substance: RITONAVIR
     Indication: HIV INFECTION
     Route: 048
  2. EMTRICITABINE W/TENOFOVIR [Concomitant]
     Active Substance: EMTRICITABINE\TENOFOVIR DISOPROXIL
     Indication: HIV INFECTION
     Route: 048
  3. ATAZANAVIR SULFATE. [Concomitant]
     Active Substance: ATAZANAVIR SULFATE
     Indication: HIV INFECTION
     Route: 048

REACTIONS (7)
  - Laryngeal cancer metastatic [Fatal]
  - Drug interaction [Unknown]
  - Dermatitis [Unknown]
  - Pneumonia [Unknown]
  - Drug intolerance [Unknown]
  - Mucosal inflammation [Unknown]
  - Neutrophil count decreased [Unknown]
